FAERS Safety Report 8885277 (Version 2)
Quarter: 2012Q4

REPORT INFORMATION
  Report Type: 
  Country: US (occurrence: US)
  Receive Date: 20121102
  Receipt Date: 20121214
  Transmission Date: 20130627
  Serious: No
  Sender: FDA-Public Use
  Company Number: US-PFIZER INC-2012269328

PATIENT
  Age: 18 Year
  Sex: Female

DRUGS (2)
  1. MEDROXYPROGESTERONE ACETATE [Suspect]
     Indication: CONTRACEPTION
     Dosage: 150 mg/ml
  2. DEPO-PROVERA [Suspect]
     Indication: CONTRACEPTION
     Dosage: 1000/2.5 mg/ml, UNK
     Dates: start: 20121022

REACTIONS (4)
  - Drug dispensing error [Unknown]
  - Wrong drug administered [Unknown]
  - Injection site discomfort [Unknown]
  - Injection site pain [Unknown]
